FAERS Safety Report 26090564 (Version 2)
Quarter: 2025Q4

REPORT INFORMATION
  Report Type: Report from Study
  Country: ZA (occurrence: ZA)
  Receive Date: 20251126
  Receipt Date: 20251130
  Transmission Date: 20260118
  Serious: Yes (Other)
  Sender: ROCHE
  Company Number: ZA-ROCHE-10000165229

PATIENT
  Sex: Female

DRUGS (3)
  1. VABYSMO [Suspect]
     Active Substance: FARICIMAB-SVOA
     Indication: Macular degeneration
     Dosage: LEFT EYE?2ND INJECTION:  25-NOVEMBER-2024 (5 WEEKS)?3RD INJECTION:  20-DECEMBER-2024 (3 WEEKS)
     Route: 050
     Dates: start: 20241023
  2. VABYSMO [Suspect]
     Active Substance: FARICIMAB-SVOA
     Dosage: LEFT EYE?2ND INJECTION:  25-NOVEMBER-2024 (5 WEEKS)?3RD INJECTION:  20-DECEMBER-2024 (3 WEEKS)
     Route: 050
     Dates: start: 20241023
  3. VABYSMO [Suspect]
     Active Substance: FARICIMAB-SVOA
     Route: 050

REACTIONS (4)
  - Visual acuity reduced [Unknown]
  - Retinal thickening [Unknown]
  - Off label use [Unknown]
  - Optical coherence tomography abnormal [Unknown]
